FAERS Safety Report 24445446 (Version 1)
Quarter: 2024Q4

REPORT INFORMATION
  Report Type: Spontaneous
  Country: IT (occurrence: IT)
  Receive Date: 20241016
  Receipt Date: 20241016
  Transmission Date: 20250114
  Serious: Yes (Hospitalization)
  Sender: ROCHE
  Company Number: IT-ROCHE-10000099888

PATIENT
  Age: 71 Year
  Sex: Male

DRUGS (3)
  1. ALECTINIB [Suspect]
     Active Substance: ALECTINIB
     Indication: Lung neoplasm malignant
     Route: 065
  2. ALECTINIB [Suspect]
     Active Substance: ALECTINIB
     Indication: Metastases to bone
  3. ALECTINIB [Suspect]
     Active Substance: ALECTINIB
     Indication: Metastases to liver

REACTIONS (1)
  - Cholera [Recovered/Resolved]
